FAERS Safety Report 9349920 (Version 2)
Quarter: 2013Q4

REPORT INFORMATION
  Report Type: Spontaneous
  Country: US (occurrence: US)
  Receive Date: 20130614
  Receipt Date: 20131125
  Transmission Date: 20140711
  Serious: Yes (Life-Threatening, Hospitalization, Other)
  Sender: FDA-Public Use
  Company Number: CHPA2013US009784

PATIENT
  Age: 79 Year
  Sex: Female
  Weight: 45.35 kg

DRUGS (6)
  1. TRANSDERM SCOP [Suspect]
     Indication: VERTIGO
     Dosage: 1 DF,
     Route: 062
     Dates: start: 201303, end: 20130305
  2. MECLIZINE HCL TABLETS USP [Suspect]
     Indication: VERTIGO
     Dosage: UNK, UNK
     Route: 048
     Dates: start: 201303
  3. REMERON [Concomitant]
     Dosage: UNK, UNK
  4. DEPAKOTE [Concomitant]
     Dosage: UNK, UNK
  5. ANTIHYPERTENSIVES [Concomitant]
     Dosage: UNK, UNK
     Dates: end: 20130305
  6. METOPROLOL [Concomitant]
     Dosage: UNK
     Dates: end: 20130305

REACTIONS (17)
  - General physical health deterioration [Unknown]
  - Urinary tract infection [Unknown]
  - Compression fracture [Recovering/Resolving]
  - Fall [Recovered/Resolved]
  - Speech disorder [Recovered/Resolved]
  - Hallucination [Recovered/Resolved]
  - Confusional state [Unknown]
  - Cerebral haemorrhage [Unknown]
  - Head injury [Unknown]
  - Abnormal behaviour [Recovered/Resolved]
  - Diplopia [Recovering/Resolving]
  - Eye disorder [Recovered/Resolved]
  - Visual acuity reduced [Recovering/Resolving]
  - Contusion [Recovering/Resolving]
  - Pain [Unknown]
  - Memory impairment [Recovered/Resolved]
  - Off label use [Unknown]
